FAERS Safety Report 5148925-6 (Version None)
Quarter: 2006Q4

REPORT INFORMATION
  Report Type: 
  Country: None (occurrence: None)
  Receive Date: 20061113
  Receipt Date: 20061107
  Transmission Date: 20070319
  Serious: Yes (Hospitalization)
  Sender: FDA-Public Use
  Company Number: JP-BRACCO-BRO-010918

PATIENT
  Age: 68 Year
  Sex: Female

DRUGS (2)
  1. IOPAMIRON [Suspect]
     Route: 050
     Dates: start: 20061025, end: 20061025
  2. IOPAMIRON [Suspect]
     Route: 050
     Dates: start: 20061025, end: 20061025

REACTIONS (1)
  - GLAUCOMA [None]
